FAERS Safety Report 5904278-4 (Version None)
Quarter: 2008Q3

REPORT INFORMATION
  Report Type: 
  Country: None (occurrence: None)
  Receive Date: 20080930
  Receipt Date: 20080930
  Transmission Date: 20090109
  Serious: No
  Sender: FDA-Public Use
  Company Number: None

PATIENT
  Age: 53 Year
  Sex: Female
  Weight: 76.2043 kg

DRUGS (1)
  1. PHENDIMETRAZINE 35MG SANDOZ [Suspect]
     Dosage: 35MG 3 TIMES DAILY
     Dates: start: 20070323, end: 20080423

REACTIONS (1)
  - RENAL FAILURE ACUTE [None]
